FAERS Safety Report 7064716-3 (Version None)
Quarter: 2010Q4

REPORT INFORMATION
  Report Type: 
  Country: None (occurrence: None)
  Receive Date: 20101027
  Receipt Date: 19950906
  Transmission Date: 20110411
  Serious: Yes (Death, Life-Threatening)
  Sender: FDA-Public Use
  Company Number: CA-ROCHE-50931

PATIENT
  Age: 84 Year
  Sex: Female

DRUGS (3)
  1. MANERIX [Suspect]
     Indication: PRODUCT USED FOR UNKNOWN INDICATION
     Route: 048
     Dates: start: 19950301
  2. DIGOXIN [Concomitant]
  3. ACE INHIBITOR [Concomitant]

REACTIONS (2)
  - COMA [None]
  - DEATH [None]
